FAERS Safety Report 13082519 (Version 1)
Quarter: 2017Q1

REPORT INFORMATION
  Report Type: Spontaneous
  Country: US (occurrence: US)
  Receive Date: 20170103
  Receipt Date: 20170103
  Transmission Date: 20170428
  Serious: Yes (Death, Other)
  Sender: FDA-Public Use
  Company Number: US-ABBVIE-17P-163-1827285-00

PATIENT

DRUGS (6)
  1. VALPROIC ACID. [Suspect]
     Active Substance: VALPROIC ACID
     Indication: EPILEPSY
     Route: 065
  2. VALPROIC ACID. [Suspect]
     Active Substance: VALPROIC ACID
     Indication: FEBRILE INFECTION
  3. ISOFLURANE. [Suspect]
     Active Substance: ISOFLURANE
     Indication: EPILEPSY
     Route: 055
  4. ISOFLURANE. [Suspect]
     Active Substance: ISOFLURANE
     Indication: FEBRILE INFECTION
  5. CANNABIDIOL [Concomitant]
     Active Substance: CANNABIDIOL
     Indication: EPILEPSY
     Route: 065
  6. CANNABIDIOL [Concomitant]
     Active Substance: CANNABIDIOL
     Indication: FEBRILE INFECTION

REACTIONS (2)
  - Multiple organ dysfunction syndrome [Fatal]
  - Therapy non-responder [Not Recovered/Not Resolved]
